FAERS Safety Report 4700836-3 (Version None)
Quarter: 2005Q2

REPORT INFORMATION
  Report Type: 
  Country: None (occurrence: None)
  Receive Date: 20050628
  Receipt Date: 20050621
  Transmission Date: 20051028
  Serious: Yes (Death, Hospitalization)
  Sender: FDA-Public Use
  Company Number: NL-SANOFI-SYNTHELABO-A01200504297

PATIENT
  Sex: Female

DRUGS (7)
  1. PLAQUENIL [Suspect]
     Dates: start: 20040609, end: 20040620
  2. NEXIUM [Concomitant]
  3. LANOXIN [Concomitant]
  4. SPIRONOLACTONE [Concomitant]
  5. LASIX [Concomitant]
  6. AKINETON [Concomitant]
  7. PARACETAMOL [Concomitant]

REACTIONS (4)
  - DEATH [None]
  - INFECTION [None]
  - STEVENS-JOHNSON SYNDROME [None]
  - TOXIC EPIDERMAL NECROLYSIS [None]
